FAERS Safety Report 9671176 (Version 2)
Quarter: 2013Q4

REPORT INFORMATION
  Report Type: Spontaneous
  Country: ES (occurrence: ES)
  Receive Date: 20131106
  Receipt Date: 20131106
  Transmission Date: 20140711
  Serious: Yes (Hospitalization, Disabling, Other)
  Sender: FDA-Public Use
  Company Number: ES-CELGENEUS-144-21880-13080475

PATIENT
  Age: 74 Year
  Sex: Female

DRUGS (12)
  1. REVLIMID [Suspect]
     Indication: PLASMA CELL MYELOMA
     Dosage: 10 MILLIGRAM
     Route: 048
     Dates: start: 20091123
  2. REVLIMID [Suspect]
     Dosage: 15 MILLIGRAM
     Route: 048
     Dates: end: 20130714
  3. ALLOPURINOL [Concomitant]
     Indication: RENAL FAILURE
     Dosage: 100 MILLIGRAM
     Route: 065
     Dates: start: 2008
  4. ALLOPURINOL [Concomitant]
     Indication: HYPERURICAEMIA
  5. BISOPROLOL [Concomitant]
     Indication: HYPERTENSION
     Dosage: 5 MILLIGRAM
     Route: 065
     Dates: start: 20080325
  6. BISOPROLOL [Concomitant]
     Indication: CARDIOMYOPATHY
  7. FUROSEMIDE [Concomitant]
     Indication: HYPERTENSION
     Dosage: 40 MILLIGRAM
     Route: 065
     Dates: start: 2008
  8. FUROSEMIDE [Concomitant]
     Indication: CARDIOMYOPATHY
  9. OMEPRAZOLE [Concomitant]
     Indication: PLASMA CELL MYELOMA
     Dosage: 40 MILLIGRAM
     Route: 065
     Dates: start: 2009
  10. GRANULOCYTE STIMULATING FACTOR [Concomitant]
     Indication: NEUTROPENIA
     Route: 065
  11. ANTIBIOTICS [Concomitant]
     Indication: NEUTROPENIA
     Route: 065
  12. ISOLATION [Concomitant]
     Indication: NEUTROPENIA
     Route: 065

REACTIONS (2)
  - Acute myeloid leukaemia [Unknown]
  - Pancytopenia [Not Recovered/Not Resolved]
